FAERS Safety Report 12199251 (Version 1)
Quarter: 2016Q1

REPORT INFORMATION
  Report Type: Spontaneous
  Country: US (occurrence: US)
  Receive Date: 20160322
  Receipt Date: 20160322
  Transmission Date: 20160526
  Serious: No
  Sender: FDA-Public Use
  Company Number: US-PFIZER INC-2016127548

PATIENT
  Sex: Female

DRUGS (1)
  1. EFFEXOR [Suspect]
     Active Substance: VENLAFAXINE HYDROCHLORIDE
     Dosage: UNK

REACTIONS (6)
  - Nightmare [Unknown]
  - Paraesthesia [Unknown]
  - Drug dose omission [Unknown]
  - Feeling abnormal [Unknown]
  - Tremor [Unknown]
  - Fear [Unknown]
